FAERS Safety Report 13156334 (Version 1)
Quarter: 2017Q1

REPORT INFORMATION
  Report Type: Spontaneous
  Country: US (occurrence: US)
  Receive Date: 20170126
  Receipt Date: 20170126
  Transmission Date: 20170428
  Serious: No
  Sender: FDA-Public Use
  Company Number: US-009507513-1701USA011819

PATIENT
  Age: 15 Year
  Sex: Female

DRUGS (1)
  1. NEXPLANON [Suspect]
     Active Substance: ETONOGESTREL
     Indication: CONTRACEPTION
     Dosage: 3 YEAR IMPLANT
     Route: 059

REACTIONS (8)
  - Malaise [Unknown]
  - Chest pain [Unknown]
  - Vision blurred [Unknown]
  - Weight increased [Unknown]
  - Alopecia [Unknown]
  - Headache [Unknown]
  - Acne [Unknown]
  - Abdominal pain upper [Unknown]
